FAERS Safety Report 8431083-X (Version None)
Quarter: 2012Q2

REPORT INFORMATION
  Report Type: 
  Country: None (occurrence: None)
  Receive Date: 20120612
  Receipt Date: 20120605
  Transmission Date: 20120825
  Serious: Yes (Hospitalization)
  Sender: FDA-Public Use
  Company Number: DE-FRI-1000030167

PATIENT
  Age: 63 Year
  Sex: Male

DRUGS (4)
  1. RAMIPRIL [Suspect]
     Dosage: 10 MG
     Dates: start: 20080101, end: 20120529
  2. ASPIRIN [Concomitant]
     Dosage: 100 MG
     Dates: start: 20080101
  3. SIMVASTATIN [Concomitant]
     Dosage: 20 MG
     Dates: start: 20080101
  4. NEBIVOLOL [Suspect]
     Indication: HYPERTENSION
     Dosage: 2.5 MG
     Route: 048
     Dates: start: 20080101

REACTIONS (3)
  - DYSPHAGIA [None]
  - DIZZINESS [None]
  - CYANOSIS [None]
